FAERS Safety Report 6133010-7 (Version None)
Quarter: 2009Q1

REPORT INFORMATION
  Report Type: 
  Country: None (occurrence: None)
  Receive Date: 20090326
  Receipt Date: 20090317
  Transmission Date: 20090719
  Serious: Yes (Other)
  Sender: FDA-Public Use
  Company Number: US-PFIZER INC-2006040251

PATIENT
  Sex: Female
  Weight: 72 kg

DRUGS (8)
  1. PROVERA [Suspect]
     Indication: HORMONE REPLACEMENT THERAPY
     Dosage: UNK
     Route: 048
     Dates: start: 19850820, end: 19951201
  2. PROVERA [Suspect]
     Indication: MENOPAUSAL SYMPTOMS
  3. PREMARIN [Suspect]
     Indication: HORMONE REPLACEMENT THERAPY
     Dosage: UNK
     Route: 065
     Dates: start: 19850820, end: 19930101
  4. PREMARIN [Suspect]
     Indication: MENOPAUSAL SYMPTOMS
  5. ESTRACE [Suspect]
     Indication: HORMONE REPLACEMENT THERAPY
     Dosage: UNK
     Route: 065
     Dates: start: 19930101, end: 19951201
  6. ESTRACE [Suspect]
     Indication: MENOPAUSAL SYMPTOMS
  7. CARDIZEM [Concomitant]
     Dosage: UNK
     Route: 065
     Dates: start: 19860101
  8. CAPOTEN [Concomitant]
     Indication: HYPERTENSION
     Dosage: UNK
     Route: 065
     Dates: start: 19860101, end: 20040101

REACTIONS (1)
  - BREAST CANCER [None]
